FAERS Safety Report 9336885 (Version 1)
Quarter: 2013Q2

REPORT INFORMATION
  Report Type: Spontaneous
  Country: HR (occurrence: HR)
  Receive Date: 20130607
  Receipt Date: 20130607
  Transmission Date: 20140414
  Serious: Yes (Death)
  Sender: FDA-Public Use
  Company Number: HR-ROXANE LABORATORIES, INC.-2013-RO-00898RO

PATIENT
  Sex: Male

DRUGS (1)
  1. METHADONE [Suspect]
     Indication: DRUG DEPENDENCE

REACTIONS (1)
  - Death [Fatal]
